FAERS Safety Report 20374389 (Version 6)
Quarter: 2022Q4

REPORT INFORMATION
  Report Type: Report from Study
  Country: DE (occurrence: DE)
  Receive Date: 20220125
  Receipt Date: 20221110
  Transmission Date: 20230113
  Serious: Yes (Hospitalization, Other)
  Sender: FDA-Public Use
  Company Number: DE-MYLANLABS-2022M1006609

PATIENT
  Sex: Female

DRUGS (13)
  1. HULIO [Suspect]
     Active Substance: ADALIMUMAB-FKJP
     Indication: Axial spondyloarthritis
     Dosage: 40 MILLIGRAM, Q2W
     Route: 065
     Dates: start: 20200225
  2. CELECOXIB [Suspect]
     Active Substance: CELECOXIB
     Indication: Axial spondyloarthritis
     Dosage: 400 MILLIGRAM
     Route: 065
     Dates: start: 20200101, end: 20200324
  3. CELECOXIB [Suspect]
     Active Substance: CELECOXIB
     Dosage: 200 MILLIGRAM, BIWEEKLY
     Route: 065
     Dates: start: 20210320
  4. LEVETIRACETAM [Suspect]
     Active Substance: LEVETIRACETAM
     Indication: Axial spondyloarthritis
     Dosage: 1500 MILLIGRAM
     Route: 065
     Dates: start: 20200401
  5. ATORVASTATIN CALCIUM [Suspect]
     Active Substance: ATORVASTATIN CALCIUM
     Indication: Axial spondyloarthritis
     Dosage: 10 MG
     Route: 065
     Dates: start: 20200101
  6. XARELTO [Suspect]
     Active Substance: RIVAROXABAN
     Indication: Axial spondyloarthritis
     Dosage: 5 MILLIGRAM
     Route: 065
     Dates: start: 20210702
  7. TORSEMIDE [Suspect]
     Active Substance: TORSEMIDE
     Indication: Axial spondyloarthritis
     Dosage: 2.5 MILLIGRAM
     Route: 065
  8. TORSEMIDE [Suspect]
     Active Substance: TORSEMIDE
     Dosage: 5 MILLIGRAM
     Route: 065
     Dates: start: 20210518
  9. ASPIRIN [Suspect]
     Active Substance: ASPIRIN
     Indication: Axial spondyloarthritis
     Dosage: 100 MILLIGRAM, START 02-JUL-2021
     Route: 065
  10. FORMOTEROL FUMARATE [Suspect]
     Active Substance: FORMOTEROL FUMARATE
     Indication: Axial spondyloarthritis
     Dosage: 0.02 MILLIGRAM
     Route: 065
     Dates: start: 20200101
  11. FALITHROM [Suspect]
     Active Substance: PHENPROCOUMON
     Indication: Axial spondyloarthritis
     Dosage: UNK
     Route: 065
     Dates: start: 20200101
  12. FORMOTEROL [Suspect]
     Active Substance: FORMOTEROL
     Indication: Axial spondyloarthritis
     Dosage: 0.02 MILLIGRAM
     Route: 065
     Dates: start: 20200101
  13. LEVOTHYROXINE SODIUM [Suspect]
     Active Substance: LEVOTHYROXINE SODIUM
     Indication: Axial spondyloarthritis
     Dosage: 0.05 MILLIGRAM
     Route: 065
     Dates: start: 20200101

REACTIONS (4)
  - Dry gangrene [Not Recovered/Not Resolved]
  - Vascular graft occlusion [Not Recovered/Not Resolved]
  - Vascular graft infection [Not Recovered/Not Resolved]
  - Vascular occlusion [Unknown]

NARRATIVE: CASE EVENT DATE: 20210504
